FAERS Safety Report 4897789-4 (Version None)
Quarter: 2006Q1

REPORT INFORMATION
  Report Type: 
  Country: None (occurrence: None)
  Receive Date: 20060130
  Receipt Date: 20060130
  Transmission Date: 20060701
  Serious: Yes (Hospitalization)
  Sender: FDA-Public Use
  Company Number: None

PATIENT
  Age: 57 Year
  Sex: Female
  Weight: 75.2971 kg

DRUGS (22)
  1. GEMZAR [Suspect]
     Indication: BREAST CANCER METASTATIC
     Dosage: 1820 MG, QW, IV
     Route: 042
     Dates: start: 20060111
  2. TAXOTERE [Suspect]
     Indication: BREAST CANCER METASTATIC
     Dosage: 110 MG Q 3 W, IV
     Route: 042
     Dates: start: 20051128
  3. LORAZEPAM [Concomitant]
  4. NORVASC [Concomitant]
  5. ASPIRIN [Concomitant]
  6. LASIX [Concomitant]
  7. PREVACID [Concomitant]
  8. POTASSIUM CHLORIDE [Concomitant]
  9. OXYCODONE [Concomitant]
  10. ZOFRAN [Concomitant]
  11. NEUPOGEN [Concomitant]
  12. ZOMETA [Concomitant]
  13. PROCRIT [Concomitant]
  14. DIFLUCAN [Concomitant]
  15. IBUPROFEN [Concomitant]
  16. RED BLOOD CELLS [Concomitant]
  17. DECADRON PHOSPHATE [Concomitant]
  18. BENADRYL [Concomitant]
  19. PEPCID [Concomitant]
  20. KLOR-CON [Concomitant]
  21. CALCIUM GLUCONATE [Concomitant]
  22. VITAMIN D [Concomitant]

REACTIONS (2)
  - PLEURAL EFFUSION [None]
  - POOR VENOUS ACCESS [None]
